FAERS Safety Report 7712844-9 (Version None)
Quarter: 2011Q3

REPORT INFORMATION
  Report Type: 
  Country: None (occurrence: None)
  Receive Date: 20110826
  Receipt Date: 20110819
  Transmission Date: 20111222
  Serious: No
  Sender: FDA-Public Use
  Company Number: PHHY2011JP68690

PATIENT
  Age: 25 Year
  Sex: Female

DRUGS (3)
  1. ALPRAZOLAM [Concomitant]
     Dosage: UNK UKN, UNK
     Route: 048
  2. PARLODEL [Suspect]
     Indication: DEPRESSION
     Dosage: UNK UKN, UNK
     Route: 048
  3. DOGMATYL [Suspect]
     Dosage: UNK UKN, UNK
     Route: 048

REACTIONS (1)
  - METRORRHAGIA [None]
